FAERS Safety Report 13904788 (Version 1)
Quarter: 2017Q3

REPORT INFORMATION
  Report Type: Spontaneous
  Country: US (occurrence: US)
  Receive Date: 20170824
  Receipt Date: 20170824
  Transmission Date: 20171127
  Serious: Yes (Hospitalization)
  Sender: FDA-Public Use
  Company Number: None

PATIENT
  Age: 74 Year
  Sex: Male
  Weight: 90 kg

DRUGS (6)
  1. PRAVASTATIN TABS 20MG [Suspect]
     Active Substance: PRAVASTATIN
     Indication: BLOOD CHOLESTEROL INCREASED
     Dosage: ?          QUANTITY:1 TABLET(S);?
     Route: 048
     Dates: start: 20170204, end: 20170224
  2. ZANTAC [Concomitant]
     Active Substance: RANITIDINE HYDROCHLORIDE
  3. METOPROLOL TARTRATE. [Concomitant]
     Active Substance: METOPROLOL TARTRATE
  4. ASPIRIN. [Concomitant]
     Active Substance: ASPIRIN
  5. TAMSULOSIN HCL [Concomitant]
     Active Substance: TAMSULOSIN
  6. XARELTO [Concomitant]
     Active Substance: RIVAROXABAN

REACTIONS (8)
  - Loss of consciousness [None]
  - Headache [None]
  - Flank pain [None]
  - Deep vein thrombosis [None]
  - Asthenia [None]
  - Dizziness [None]
  - Oral herpes [None]
  - Pulmonary embolism [None]

NARRATIVE: CASE EVENT DATE: 20170224
